FAERS Safety Report 16679313 (Version 1)
Quarter: 2019Q3

REPORT INFORMATION
  Report Type: Spontaneous
  Country: GB (occurrence: GB)
  Receive Date: 20190807
  Receipt Date: 20190807
  Transmission Date: 20191004
  Serious: Yes (Disabling)
  Sender: FDA-Public Use
  Company Number: GB-PFIZER INC-2019331893

PATIENT
  Age: 76 Year
  Sex: Female
  Weight: 78 kg

DRUGS (14)
  1. HYDROXYCHLOROQUINE SULFATE. [Concomitant]
     Active Substance: HYDROXYCHLOROQUINE SULFATE
     Dosage: 2 DF, DAILY
     Dates: start: 20190103
  2. GLANDOSANE [CALCIUM CHLORIDE DIHYDRATE;CARMELLOSE SODIUM;MAGNESIUM CHL [Concomitant]
     Indication: DRY MOUTH
     Dosage: UNK (USE AS DIRECTED)
     Dates: start: 20181017
  3. PARACETAMOL [Concomitant]
     Active Substance: ACETAMINOPHEN
     Indication: PAIN
     Dosage: 8 DF, DAILY (MAXIMUM 8)
     Dates: start: 20100603
  4. DOXAZOSIN MESILATE [Suspect]
     Active Substance: DOXAZOSIN MESYLATE
     Dosage: 4 MG, DAILY
     Dates: start: 20190301
  5. CETIRIZINE [Concomitant]
     Active Substance: CETIRIZINE HYDROCHLORIDE
     Dosage: 1 DF, DAILY
     Dates: start: 20181017
  6. OMEPRAZOLE. [Concomitant]
     Active Substance: OMEPRAZOLE
     Indication: HYPERCHLORHYDRIA
     Dosage: 1 DF, DAILY
     Dates: start: 20190416
  7. HYPROMELLOSE [Concomitant]
     Active Substance: HYPROMELLOSES
     Dosage: 1 GTT, AS NESESSARY
     Dates: start: 20190103
  8. LISINOPRIL. [Concomitant]
     Active Substance: LISINOPRIL
     Dosage: 4 DF, DAILY
     Dates: start: 20181017
  9. CHLORAMPHENICOL [Concomitant]
     Active Substance: CHLORAMPHENICOL
     Dosage: 2 DF, DAILY (APPLY TO THE AFFECTED EYE(S))
     Route: 050
     Dates: start: 20190528
  10. ZEMTARD [Concomitant]
     Dosage: 1 DF, DAILY
     Dates: start: 20181017
  11. MOVICOL [Concomitant]
     Active Substance: POLYETHYLENE GLYCOL 3350\POTASSIUM CHLORIDE\SODIUM BICARBONATE\SODIUM CHLORIDE
     Dosage: UNK (USE AS DIRECTED)
     Dates: start: 20180629
  12. MEBEVERINE HYDROCHLORIDE [Concomitant]
     Active Substance: MEBEVERINE HYDROCHLORIDE
     Dosage: 2 DF, DAILY
     Dates: start: 20181017
  13. LEVOTHYROXINE. [Concomitant]
     Active Substance: LEVOTHYROXINE
     Dosage: 1 DF, DAILY (EACH MORNING)
     Dates: start: 20181017
  14. SIMVASTATIN. [Concomitant]
     Active Substance: SIMVASTATIN
     Dosage: 1 DF, DAILY (AT NIGHT)
     Dates: start: 20181017

REACTIONS (2)
  - Diarrhoea [Recovered/Resolved]
  - Malaise [Unknown]
